FAERS Safety Report 9375841 (Version 1)
Quarter: 2013Q2

REPORT INFORMATION
  Report Type: Spontaneous
  Country: FR (occurrence: FR)
  Receive Date: 20130628
  Receipt Date: 20130628
  Transmission Date: 20140414
  Serious: Yes (Hospitalization)
  Sender: FDA-Public Use
  Company Number: FR-009507513-1306FRA012990

PATIENT
  Age: 69 Year
  Sex: Female

DRUGS (6)
  1. NASONEX [Suspect]
     Indication: NASAL POLYPS
     Dosage: 1 DF, QD
     Route: 045
  2. LEVOTHYROX [Concomitant]
     Dosage: 125 MICROGRAM, QD
     Route: 048
  3. LERCAN [Concomitant]
     Dosage: 10 MG, QD
     Route: 048
  4. COKENZEN [Concomitant]
     Dosage: 1 DF, QD
     Route: 048
  5. ART (DIACEREIN) [Concomitant]
     Dosage: 50 MG, BID
     Route: 048
  6. DUOTRAV [Concomitant]
     Dosage: UNK
     Route: 047

REACTIONS (1)
  - Osteonecrosis [Unknown]
